FAERS Safety Report 8272975 (Version 2)
Quarter: 2015Q4

REPORT INFORMATION
  Report Type: Report from Study
  Country: US (occurrence: US)
  Receive Date: 20111202
  Receipt Date: 20151125
  Transmission Date: 20160305
  Serious: Yes (Life-Threatening, Hospitalization, Other)
  Sender: FDA-Public Use
  Company Number: US-ROCHE-1018031

PATIENT
  Age: 75 Year
  Sex: Female

DRUGS (4)
  1. BEVACIZUMAB [Suspect]
     Active Substance: BEVACIZUMAB
     Indication: FALLOPIAN TUBE CANCER
     Dosage: IV OVER 30-90 MIN ON DAY 1, BEGINNING WITH CYCLE 2.PHASE A CYCLE 16, LAST DOSE PRIOR TO SAE: 21/NOV/
     Route: 042
     Dates: start: 20110613
  2. ACYCLOVIR. [Concomitant]
     Active Substance: ACYCLOVIR
     Route: 042
  3. PACLITAXEL. [Suspect]
     Active Substance: PACLITAXEL
     Indication: FALLOPIAN TUBE CANCER
     Dosage: IV OVER 1 HR ON DAYS 1, 8 + 15.LAST DOSE PRIOR TO SAE: 21/NOV/2011
     Route: 042
     Dates: start: 20110613
  4. CARBOPLATIN. [Suspect]
     Active Substance: CARBOPLATIN
     Indication: FALLOPIAN TUBE CANCER
     Dosage: AUC 6 IP ON DAY 1, LAST DOSE PRIOR TO SAE: 21/NOV/2011
     Route: 033
     Dates: start: 20110613

REACTIONS (8)
  - Febrile neutropenia [Unknown]
  - Confusional state [Unknown]
  - Encephalopathy [Unknown]
  - Seizure [Unknown]
  - Hypertension [Unknown]
  - Dehydration [Unknown]
  - Haemorrhage intracranial [Unknown]
  - Pyrexia [Unknown]

NARRATIVE: CASE EVENT DATE: 20110917
